FAERS Safety Report 6895491-0 (Version None)
Quarter: 2010Q3

REPORT INFORMATION
  Report Type: 
  Country: None (occurrence: None)
  Receive Date: 20100802
  Receipt Date: 20100723
  Transmission Date: 20110219
  Serious: Yes (Other)
  Sender: FDA-Public Use
  Company Number: PHHY2010US48816

PATIENT
  Sex: Male
  Weight: 79.5 kg

DRUGS (1)
  1. EXJADE [Suspect]
     Indication: MYELODYSPLASTIC SYNDROME
     Dosage: 2000 MGDAILY
     Route: 048
     Dates: start: 20090612

REACTIONS (1)
  - RECTAL HAEMORRHAGE [None]
